FAERS Safety Report 13151231 (Version 1)
Quarter: 2017Q1

REPORT INFORMATION
  Report Type: Spontaneous
  Country: IT (occurrence: IT)
  Receive Date: 20170124
  Receipt Date: 20170124
  Transmission Date: 20170428
  Serious: Yes (Other)
  Sender: FDA-Public Use
  Company Number: PHHY2017IT006580

PATIENT
  Age: 64 Year
  Sex: Female

DRUGS (2)
  1. LEVETIRACETAM. [Suspect]
     Active Substance: LEVETIRACETAM
     Indication: RADIOTHERAPY
     Dosage: 500 MG,
     Route: 065
  2. DEXAMETHASONE. [Concomitant]
     Active Substance: DEXAMETHASONE
     Indication: RADIOTHERAPY
     Dosage: 8 MG, BID
     Route: 065

REACTIONS (1)
  - Radiation skin injury [Recovered/Resolved]

NARRATIVE: CASE EVENT DATE: 201510
